FAERS Safety Report 12539501 (Version 3)
Quarter: 2016Q3

REPORT INFORMATION
  Report Type: Spontaneous
  Country: FI (occurrence: FI)
  Receive Date: 20160708
  Receipt Date: 20160819
  Transmission Date: 20161109
  Serious: Yes (Other)
  Sender: FDA-Public Use
  Company Number: FI-ROCHE-1789188

PATIENT
  Sex: Male

DRUGS (13)
  1. MABTHERA [Suspect]
     Active Substance: RITUXIMAB
     Dosage: 3 CYCLES FOR RICHTER`S SYNDROME
     Route: 041
     Dates: start: 20160701
  2. CYCLOPHOSPHAMIDE. [Concomitant]
     Active Substance: CYCLOPHOSPHAMIDE
     Indication: RICHTER^S SYNDROME
     Dosage: 3 CYCLES FOR RICHTER`S SYNDROME
     Route: 065
     Dates: start: 2016
  3. CYCLOPHOSPHAMIDE. [Concomitant]
     Active Substance: CYCLOPHOSPHAMIDE
     Indication: CHRONIC LYMPHOCYTIC LEUKAEMIA
     Dosage: FIRST LINE TREATMENT FOR CLL
     Route: 065
  4. ZARXIO [Concomitant]
     Active Substance: FILGRASTIM-SNDZ
     Dosage: INDICATION: GROWTH FACTOR
     Route: 065
     Dates: start: 201605
  5. COTRIM FORTE [Concomitant]
     Active Substance: SULFAMETHOXAZOLE\TRIMETHOPRIM
     Indication: ANTIFUNGAL PROPHYLAXIS
  6. FLUDARABINE [Concomitant]
     Active Substance: FLUDARABINE PHOSPHATE
     Indication: CHRONIC LYMPHOCYTIC LEUKAEMIA
     Dosage: FIRST LINE TREATMENT
     Route: 065
  7. MABTHERA [Suspect]
     Active Substance: RITUXIMAB
     Indication: CHRONIC LYMPHOCYTIC LEUKAEMIA
     Dosage: FIRST LINE TREATMENT FOR CLL
     Route: 042
  8. VINCRISTINE [Concomitant]
     Active Substance: VINCRISTINE
     Indication: RICHTER^S SYNDROME
     Dosage: 3 CYCLES
     Route: 065
     Dates: start: 2016
  9. MABTHERA [Suspect]
     Active Substance: RITUXIMAB
     Dosage: 3 CYCLES FOR RICHTER`S SYNDROME
     Route: 041
     Dates: start: 20160603
  10. DOXORUBICIN [Concomitant]
     Active Substance: DOXORUBICIN
     Indication: RICHTER^S SYNDROME
     Dosage: 3 CYCLES
     Route: 065
     Dates: start: 2016
  11. MABTHERA [Suspect]
     Active Substance: RITUXIMAB
     Indication: RICHTER^S SYNDROME
     Dosage: 3 CYCLES FOR RICHTER`S SYNDROME
     Route: 041
     Dates: start: 20160415
  12. CYTARABINE. [Concomitant]
     Active Substance: CYTARABINE
     Route: 065
     Dates: start: 201605
  13. PREDNISOLONE. [Concomitant]
     Active Substance: PREDNISOLONE
     Indication: RICHTER^S SYNDROME
     Dosage: 3 CYCLES
     Route: 065
     Dates: start: 2016

REACTIONS (3)
  - Productive cough [Not Recovered/Not Resolved]
  - Eosinophilia [Unknown]
  - Product contamination [Unknown]

NARRATIVE: CASE EVENT DATE: 201606
